FAERS Safety Report 11571607 (Version 1)
Quarter: 2015Q3

REPORT INFORMATION
  Report Type: Spontaneous
  Country: US (occurrence: US)
  Receive Date: 20150929
  Receipt Date: 20150929
  Transmission Date: 20151125
  Serious: No
  Sender: FDA-Public Use
  Company Number: US-SA-2015SA108323

PATIENT
  Age: 62 Year
  Sex: Female

DRUGS (17)
  1. IMIPRAMINE [Concomitant]
     Active Substance: IMIPRAMINE
  2. AUBAGIO [Suspect]
     Active Substance: TERIFLUNOMIDE
     Indication: MULTIPLE SCLEROSIS
     Route: 048
  3. AZOPT [Concomitant]
     Active Substance: BRINZOLAMIDE
     Dosage: SUSPENSION 1%OP
  4. DORZOLAMIDE [Concomitant]
     Active Substance: DORZOLAMIDE
     Dosage: SOL 2%OP
  5. TIZANIDINE. [Concomitant]
     Active Substance: TIZANIDINE
  6. ZETIA [Concomitant]
     Active Substance: EZETIMIBE
  7. DONEPEZIL. [Concomitant]
     Active Substance: DONEPEZIL
  8. PHENDIMETRAZINE [Concomitant]
     Active Substance: PHENDIMETRAZINE
     Dosage: 35 MG
  9. SIMVASTATIN. [Concomitant]
     Active Substance: SIMVASTATIN
  10. LEVOTHYROXINE. [Concomitant]
     Active Substance: LEVOTHYROXINE
  11. TIMOLOL. [Concomitant]
     Active Substance: TIMOLOL
     Dosage: SOL 0.5% OP
  12. ESCITALOPRAM [Concomitant]
     Active Substance: ESCITALOPRAM OXALATE
  13. TRAMADOL HYDROCHLORIDE. [Concomitant]
     Active Substance: TRAMADOL HYDROCHLORIDE
  14. METOPROLOL [Concomitant]
     Active Substance: METOPROLOL
  15. LATANOPROST. [Concomitant]
     Active Substance: LATANOPROST
     Dosage: SOL 0.005%
  16. LOSARTAN POTASSIUM. [Concomitant]
     Active Substance: LOSARTAN POTASSIUM
  17. TOLTERODINE [Concomitant]
     Active Substance: TOLTERODINE

REACTIONS (2)
  - Pruritus [Not Recovered/Not Resolved]
  - Dry skin [Not Recovered/Not Resolved]

NARRATIVE: CASE EVENT DATE: 20150520
